FAERS Safety Report 25025621 (Version 1)
Quarter: 2025Q1

REPORT INFORMATION
  Report Type: Spontaneous
  Country: GB (occurrence: GB)
  Receive Date: 20250228
  Receipt Date: 20250228
  Transmission Date: 20250409
  Serious: Yes (Death, Other)
  Sender: ABBVIE
  Company Number: GB-ABBVIE-6154509

PATIENT
  Sex: Female

DRUGS (2)
  1. VENETOCLAX [Suspect]
     Active Substance: VENETOCLAX
     Indication: Acute myeloid leukaemia
     Route: 048
  2. VENETOCLAX [Suspect]
     Active Substance: VENETOCLAX
     Indication: Acute myeloid leukaemia
     Route: 048

REACTIONS (6)
  - Multiple organ dysfunction syndrome [Fatal]
  - Fungal infection [Unknown]
  - Full blood count decreased [Unknown]
  - Transplant [Unknown]
  - Infection in an immunocompromised host [Unknown]
  - Venoocclusive disease [Unknown]
